FAERS Safety Report 23594006 (Version 1)
Quarter: 2024Q1

REPORT INFORMATION
  Report Type: Other
  Country: CN (occurrence: None)
  Receive Date: 20240305
  Receipt Date: 20240305
  Transmission Date: 20240409
  Serious: Yes (Hospitalization, Other)
  Sender: FDA-Public Use
  Company Number: CN-Square-000209

PATIENT
  Age: 16 Year
  Sex: Female

DRUGS (1)
  1. CALCIUM HYDROXIDE [Suspect]
     Active Substance: CALCIUM HYDROXIDE
     Indication: Tooth pulp haemorrhage

REACTIONS (4)
  - Embolia cutis medicamentosa [Recovered/Resolved]
  - Nausea [Unknown]
  - Vomiting [Unknown]
  - Headache [Unknown]
